FAERS Safety Report 24999556 (Version 1)
Quarter: 2025Q1

REPORT INFORMATION
  Report Type: Spontaneous
  Country: US (occurrence: US)
  Receive Date: 20250222
  Receipt Date: 20250222
  Transmission Date: 20250409
  Serious: No
  Sender: SANOFI AVENTIS
  Company Number: US-SA-2025SA049238

PATIENT
  Age: 39 Year
  Sex: Female

DRUGS (2)
  1. DUPIXENT [Suspect]
     Active Substance: DUPILUMAB
     Indication: Neurodermatitis
     Dosage: 300 MG, QOW
     Route: 058
     Dates: start: 20240423
  2. MELOXICAM [Suspect]
     Active Substance: MELOXICAM
     Dates: start: 2024

REACTIONS (3)
  - Contusion [Unknown]
  - Skin haemorrhage [Unknown]
  - Skin swelling [Unknown]

NARRATIVE: CASE EVENT DATE: 20250101
